FAERS Safety Report 10269876 (Version 1)
Quarter: 2014Q2

REPORT INFORMATION
  Report Type: Spontaneous
  Country: GB (occurrence: None)
  Receive Date: 20140625
  Receipt Date: 20140625
  Transmission Date: 20141212
  Serious: Yes (Other)
  Sender: FDA-Public Use
  Company Number: GB-H14001-14-00089

PATIENT
  Age: 93 Year
  Sex: Male

DRUGS (2)
  1. PHENYTOIN (PHENYTOIN) (UNKNOWN) (PHENYTOIN) [Suspect]
     Indication: PRODUCT USED FOR UNKNOWN INDICATION
  2. XARELTO [Suspect]
     Indication: CEREBROVASCULAR ACCIDENT PROPHYLAXIS

REACTIONS (3)
  - Incorrect dose administered [None]
  - Drug interaction [None]
  - Renal impairment [None]
